FAERS Safety Report 18174453 (Version 1)
Quarter: 2020Q3

REPORT INFORMATION
  Report Type: Spontaneous
  Country: US (occurrence: US)
  Receive Date: 20200820
  Receipt Date: 20200820
  Transmission Date: 20201103
  Serious: No
  Sender: FDA-Public Use
  Company Number: US-LEO PHARMA-331072

PATIENT
  Sex: Female

DRUGS (7)
  1. EUCRISA [Concomitant]
     Active Substance: CRISABOROLE
     Indication: MELANOCYTIC NAEVUS
  2. EUCRISA [Concomitant]
     Active Substance: CRISABOROLE
     Indication: LICHEN PLANOPILARIS
     Dosage: APPLY TWICE A DAY TO EYEBROW DERMATITIS, REFILL: 1
     Dates: start: 20200512
  3. EUCRISA [Concomitant]
     Active Substance: CRISABOROLE
     Indication: SEBORRHOEIC KERATOSIS
     Dosage: APPLY TWICE A DAY TO EYEBROW DERMATITIS ?REFILLS: 1
     Dates: start: 20191105
  4. PROTOPIC [Suspect]
     Active Substance: TACROLIMUS
     Indication: LICHEN PLANOPILARIS
  5. PROTOPIC [Suspect]
     Active Substance: TACROLIMUS
     Indication: DERMATITIS
  6. EUCRISA [Concomitant]
     Active Substance: CRISABOROLE
     Indication: DERMATITIS
     Dosage: APPLY TWICE A DAY TO EYEBROW DERMATITIS ?REFILLS: 1
     Dates: start: 20181028
  7. EUCRISA [Concomitant]
     Active Substance: CRISABOROLE
     Indication: ACTINIC KERATOSIS

REACTIONS (1)
  - Drug intolerance [Unknown]
